FAERS Safety Report 7252401-4 (Version None)
Quarter: 2011Q1

REPORT INFORMATION
  Report Type: 
  Country: None (occurrence: None)
  Receive Date: 20110129
  Receipt Date: 20100114
  Transmission Date: 20110831
  Serious: No
  Sender: FDA-Public Use
  Company Number: US-ABBOTT-10P-163-0620242-00

PATIENT
  Sex: Female
  Weight: 66.284 kg

DRUGS (5)
  1. METHOTREXATE [Concomitant]
     Indication: RHEUMATOID ARTHRITIS
  2. CALCIUM [Concomitant]
     Indication: PRODUCT USED FOR UNKNOWN INDICATION
  3. HUMIRA [Suspect]
     Indication: RHEUMATOID ARTHRITIS
  4. FOLIC ACID [Concomitant]
     Indication: RHEUMATOID ARTHRITIS
  5. ACTONEL [Concomitant]
     Indication: OSTEOPOROSIS

REACTIONS (6)
  - SPUTUM DISCOLOURED [None]
  - NASOPHARYNGITIS [None]
  - INJECTION SITE PRURITUS [None]
  - INJECTION SITE SWELLING [None]
  - UPPER-AIRWAY COUGH SYNDROME [None]
  - INJECTION SITE ERYTHEMA [None]
